FAERS Safety Report 10484039 (Version 1)
Quarter: 2014Q3

REPORT INFORMATION
  Report Type: Spontaneous
  Country: US (occurrence: None)
  Receive Date: 20140929
  Receipt Date: 20140929
  Transmission Date: 20150326
  Serious: Yes (Disabling)
  Sender: FDA-Public Use
  Company Number: None

PATIENT
  Age: 57 Year
  Sex: Female
  Weight: 74.84 kg

DRUGS (1)
  1. ITRACONAZOLE. [Suspect]
     Active Substance: ITRACONAZOLE
     Indication: FUNGAL INFECTION
     Dosage: 2 PILLS PER DAY TWICE DAILY TAKEN BY MOUTH
     Route: 048
     Dates: start: 20130310, end: 20130316

REACTIONS (5)
  - Asthenia [None]
  - Abasia [None]
  - Muscle disorder [None]
  - Myalgia [None]
  - Dry skin [None]

NARRATIVE: CASE EVENT DATE: 20130310
